FAERS Safety Report 7942046 (Version 7)
Quarter: 2013Q1

REPORT INFORMATION
  Report Type: Spontaneous
  Country: US (occurrence: US)
  Receive Date: 20110512
  Receipt Date: 20130319
  Transmission Date: 20140127
  Serious: Yes (Hospitalization, Other)
  Sender: FDA-Public Use
  Company Number: US-ROCHE-766891

PATIENT
  Age: 16 Year
  Sex: Female
  Weight: 41.7 kg

DRUGS (6)
  1. ACCUTANE [Suspect]
     Indication: ACNE
     Dosage: FOR APPROX. FOUR AND A HALF MONTHS.
     Route: 065
     Dates: start: 19920323, end: 199207
  2. ACCUTANE [Suspect]
     Dosage: FOR TWO MONTHS.
     Route: 065
  3. ACCUTANE [Suspect]
     Dosage: FOR 14 WEEKS.
     Route: 065
  4. ACCUTANE [Suspect]
     Dosage: FOR 40 DAYS.
     Route: 065
     Dates: start: 19950303, end: 199504
  5. ACCUTANE [Suspect]
     Route: 065
     Dates: start: 199509, end: 199512
  6. ACCUTANE [Suspect]
     Dosage: FOR 6 WEEKS.
     Route: 065
     Dates: start: 20000301, end: 200004

REACTIONS (8)
  - Crohn^s disease [Unknown]
  - Intestinal obstruction [Unknown]
  - Anal fistula [Unknown]
  - Inflammatory bowel disease [Unknown]
  - Depression [Not Recovered/Not Resolved]
  - Irritable bowel syndrome [Unknown]
  - Acne [Unknown]
  - Dry skin [Unknown]
